FAERS Safety Report 5517708-7 (Version None)
Quarter: 2007Q4

REPORT INFORMATION
  Report Type: 
  Country: None (occurrence: None)
  Receive Date: 20071113
  Receipt Date: 20071029
  Transmission Date: 20080405
  Serious: Yes (Hospitalization)
  Sender: FDA-Public Use
  Company Number: 2005002275

PATIENT
  Age: 93 Year
  Sex: Male
  Weight: 53.1 kg

DRUGS (1)
  1. ERLOTINIB (ERLOTINIB HCI) (TABLET) (ERLOTINIB HCI) [Suspect]
     Indication: NON-SMALL CELL LUNG CANCER
     Dosage: 125 MG, QD, ORAL
     Route: 048
     Dates: start: 20050428, end: 20051111

REACTIONS (6)
  - ANOREXIA [None]
  - CHEST PAIN [None]
  - DEHYDRATION [None]
  - HAEMOGLOBIN DECREASED [None]
  - PAIN [None]
  - WEIGHT DECREASED [None]
